FAERS Safety Report 25754235 (Version 1)
Quarter: 2025Q3

REPORT INFORMATION
  Report Type: Spontaneous
  Country: JP (occurrence: JP)
  Receive Date: 20250903
  Receipt Date: 20250903
  Transmission Date: 20251021
  Serious: Yes (Other)
  Sender: ALEXION PHARMACEUTICALS
  Company Number: JP-AstraZeneca-CH-00920214A

PATIENT
  Age: 76 Year
  Sex: Female
  Weight: 48.8 kg

DRUGS (1)
  1. IMFINZI [Suspect]
     Active Substance: DURVALUMAB
     Indication: Gallbladder cancer

REACTIONS (5)
  - Type 1 diabetes mellitus [Recovered/Resolved]
  - Rheumatoid factor increased [Unknown]
  - Ketoacidosis [Unknown]
  - Metastases to lymph nodes [Unknown]
  - Glycosylated haemoglobin [Unknown]

NARRATIVE: CASE EVENT DATE: 20250114
